FAERS Safety Report 21573838 (Version 1)
Quarter: 2022Q4

REPORT INFORMATION
  Report Type: Spontaneous
  Country: US (occurrence: None)
  Receive Date: 20221108
  Receipt Date: 20221108
  Transmission Date: 20230113
  Serious: No
  Sender: FDA-Public Use
  Company Number: None

PATIENT
  Age: 73 Year
  Sex: Female
  Weight: 80.83 kg

DRUGS (10)
  1. CAPECITABINE [Suspect]
     Active Substance: CAPECITABINE
     Indication: Endometrial cancer
     Dosage: OTHER QUANTITY : 2000-2500MG;?FREQUENCY : TWICE A DAY;?
     Route: 048
     Dates: start: 20220727
  2. FERROUS SULFATE [Concomitant]
     Active Substance: FERROUS SULFATE
  3. LIPITOR [Concomitant]
     Active Substance: ATORVASTATIN CALCIUM
  4. LISINOPRIL [Concomitant]
     Active Substance: LISINOPRIL
  5. MAGNESIUM [Concomitant]
     Active Substance: MAGNESIUM
  6. NEXIUM [Concomitant]
     Active Substance: ESOMEPRAZOLE MAGNESIUM
  7. POTASSIUM [Concomitant]
     Active Substance: POTASSIUM
  8. MINERALS\VITAMINS [Concomitant]
     Active Substance: MINERALS\VITAMINS
  9. TUMS [Concomitant]
     Active Substance: CALCIUM CARBONATE
  10. VITAMIN B12 [Concomitant]
     Active Substance: CYANOCOBALAMIN

REACTIONS (1)
  - Palmar-plantar erythrodysaesthesia syndrome [None]
